FAERS Safety Report 23437034 (Version 2)
Quarter: 2024Q1

REPORT INFORMATION
  Report Type: Spontaneous
  Country: US (occurrence: US)
  Receive Date: 20240124
  Receipt Date: 20240129
  Transmission Date: 20240409
  Serious: No
  Sender: FDA-Public Use
  Company Number: US-OPELLA-2024OHG002093

PATIENT
  Sex: Female

DRUGS (1)
  1. ICY HOT PRO NO-MESS [Suspect]
     Active Substance: CAMPHOR (SYNTHETIC)\MENTHOL
     Indication: Product used for unknown indication

REACTIONS (1)
  - Application site burn [Unknown]
